FAERS Safety Report 8456873-9 (Version None)
Quarter: 2012Q2

REPORT INFORMATION
  Report Type: 
  Country: None (occurrence: None)
  Receive Date: 20120621
  Receipt Date: 20120618
  Transmission Date: 20120825
  Serious: No
  Sender: FDA-Public Use
  Company Number: US-B.I. PHARMACEUTICALS,INC./RIDGEFIELD-2012-BP-06480BP

PATIENT
  Sex: Male
  Weight: 156.03 kg

DRUGS (11)
  1. TRADJENTA [Suspect]
     Indication: TYPE 2 DIABETES MELLITUS
     Dosage: 5 MG
     Dates: start: 20111026, end: 20120314
  2. ACTOS [Concomitant]
  3. VIAGRA [Concomitant]
  4. TRILIPIX [Concomitant]
  5. METOPROLOL [Concomitant]
  6. FISH OIL [Concomitant]
  7. VERAPAMIL [Concomitant]
  8. PRAVASTATIN [Concomitant]
  9. BENICAR [Concomitant]
  10. MECLIZINE [Concomitant]
  11. DOCUSATE [Concomitant]

REACTIONS (2)
  - CONSTIPATION [None]
  - HAEMORRHOIDS [None]
